FAERS Safety Report 7576378-7 (Version None)
Quarter: 2011Q2

REPORT INFORMATION
  Report Type: 
  Country: None (occurrence: None)
  Receive Date: 20110628
  Receipt Date: 20110128
  Transmission Date: 20111010
  Serious: Yes (Hospitalization, Other)
  Sender: FDA-Public Use
  Company Number: US-BAYER-201040752NA

PATIENT
  Age: 36 Year
  Sex: Female
  Weight: 73.923 kg

DRUGS (3)
  1. YAZ [Suspect]
     Indication: ORAL CONTRACEPTION
     Dosage: UNK
     Route: 048
     Dates: start: 20080201, end: 20090101
  2. YASMIN [Suspect]
     Dosage: UNK
     Dates: start: 20070101, end: 20070801
  3. YAZ [Suspect]
     Route: 048
     Dates: start: 20090701, end: 20090901

REACTIONS (3)
  - BILIARY DYSKINESIA [None]
  - GALLBLADDER INJURY [None]
  - PALPITATIONS [None]
